FAERS Safety Report 5741109-X (Version None)
Quarter: 2008Q2

REPORT INFORMATION
  Report Type: 
  Country: None (occurrence: None)
  Receive Date: 20080514
  Receipt Date: 20080506
  Transmission Date: 20081010
  Serious: Yes (Other)
  Sender: FDA-Public Use
  Company Number: 2008011791

PATIENT
  Age: 45 Year
  Sex: Female
  Weight: 49.4421 kg

DRUGS (1)
  1. LISTERINE WHITENING QUICK DISSOLVING STRIPS (NO ACTIVE INGREDIENT) [Suspect]
     Indication: DENTAL CARE
     Dosage: 2 STRIPS ONCE, ORAL
     Route: 048
     Dates: start: 20080225, end: 20080225

REACTIONS (2)
  - CAUSTIC INJURY [None]
  - PHARMACEUTICAL PRODUCT COMPLAINT [None]
